FAERS Safety Report 7134679-0 (Version None)
Quarter: 2010Q4

REPORT INFORMATION
  Report Type: 
  Country: None (occurrence: None)
  Receive Date: 20101203
  Receipt Date: 20101119
  Transmission Date: 20110411
  Serious: Yes (Hospitalization)
  Sender: FDA-Public Use
  Company Number: US-MYLANLABS-2010S1021632

PATIENT
  Age: 15 Year
  Sex: Female

DRUGS (4)
  1. QUETIAPINE FUMARATE [Suspect]
     Indication: OVERDOSE
     Route: 048
  2. TRAZODONE HCL [Suspect]
     Indication: OVERDOSE
     Route: 048
  3. CLONIDINE [Suspect]
     Indication: OVERDOSE
     Route: 048
  4. RISPERIDONE [Concomitant]
     Indication: OVERDOSE
     Route: 048

REACTIONS (5)
  - DELIRIUM [None]
  - ELECTROCARDIOGRAM QT PROLONGED [None]
  - HYPOTENSION [None]
  - OVERDOSE [None]
  - TACHYCARDIA [None]
